FAERS Safety Report 8544665-1 (Version None)
Quarter: 2012Q3

REPORT INFORMATION
  Report Type: 
  Country: None (occurrence: None)
  Receive Date: 20120727
  Receipt Date: 20120712
  Transmission Date: 20120928
  Serious: Yes (Other)
  Sender: FDA-Public Use
  Company Number: JP-ROCHE-1082929

PATIENT
  Sex: Female
  Weight: 66 kg

DRUGS (2)
  1. CLONAZEPAM [Suspect]
     Indication: THALAMUS HAEMORRHAGE
     Dosage: 2 IN MORNING AND 1 IN EVENING
     Route: 048
  2. TASMOLIN [Concomitant]
     Dosage: DOSAGE IS UNCERTAIN.
     Route: 065
     Dates: end: 20111101

REACTIONS (2)
  - MATERNAL EXPOSURE DURING PREGNANCY [None]
  - PREMATURE RUPTURE OF MEMBRANES [None]
